FAERS Safety Report 6618278-2 (Version None)
Quarter: 2010Q1

REPORT INFORMATION
  Report Type: 
  Country: None (occurrence: None)
  Receive Date: 20100308
  Receipt Date: 20100302
  Transmission Date: 20100710
  Serious: Yes (Hospitalization)
  Sender: FDA-Public Use
  Company Number: JP-EISAI INC.-E2090-01097-SPO-JP

PATIENT
  Age: 9 Year
  Sex: Female

DRUGS (2)
  1. EXCEGRAN [Suspect]
     Indication: EPILEPSY
     Route: 048
     Dates: start: 20100101, end: 20100201
  2. BLOOD TRANSFUSION [Concomitant]
     Indication: RED BLOOD CELL COUNT DECREASED
     Dates: start: 20100101, end: 20100101

REACTIONS (1)
  - RED BLOOD CELL COUNT DECREASED [None]
